FAERS Safety Report 9168597 (Version 2)
Quarter: 2013Q4

REPORT INFORMATION
  Report Type: Spontaneous
  Country: IT (occurrence: IT)
  Receive Date: 20130318
  Receipt Date: 20131025
  Transmission Date: 20140711
  Serious: Yes (Other)
  Sender: FDA-Public Use
  Company Number: IT-PFIZER INC-2013087200

PATIENT
  Age: 79 Year
  Sex: Male

DRUGS (3)
  1. IRINOTECAN HCL [Suspect]
     Indication: COLON CANCER METASTATIC
     Dosage: 200 MG, CYCLIC
     Route: 042
     Dates: start: 20121014, end: 20121114
  2. FLUOROURACIL [Suspect]
     Indication: COLON CANCER METASTATIC
     Dosage: 2400 MG, CYCLIC
     Route: 042
     Dates: start: 20121014, end: 20121114
  3. ERBITUX [Concomitant]
     Indication: COLON CANCER METASTATIC
     Dosage: UNK
     Dates: start: 20121014, end: 20130124

REACTIONS (2)
  - Hepatic failure [Recovered/Resolved]
  - Hyperbilirubinaemia [Recovered/Resolved]
